FAERS Safety Report 4759765-1 (Version None)
Quarter: 2005Q3

REPORT INFORMATION
  Report Type: 
  Country: None (occurrence: None)
  Receive Date: 20050829
  Receipt Date: 20050707
  Transmission Date: 20060218
  Serious: No
  Sender: FDA-Public Use
  Company Number: S05-USA-03427-01

PATIENT
  Age: 48 Year
  Sex: Male

DRUGS (5)
  1. CAMPRAL [Suspect]
     Indication: ALCOHOLISM
     Dosage: 666 MG TID PO
     Route: 048
     Dates: start: 20050627, end: 20050702
  2. CYMBALTA [Concomitant]
  3. LUVOX [Concomitant]
  4. ADDERALL (DEXTROAMPHETAMINE, AMPHETAMINE) [Concomitant]
  5. KLONOPIN [Concomitant]

REACTIONS (2)
  - DIARRHOEA [None]
  - FLATULENCE [None]
